FAERS Safety Report 21382078 (Version 1)
Quarter: 2022Q3

REPORT INFORMATION
  Report Type: Report from Study
  Country: US (occurrence: US)
  Receive Date: 20220927
  Receipt Date: 20220927
  Transmission Date: 20221027
  Serious: No
  Sender: FDA-Public Use
  Company Number: US-ABBVIE-22K-163-4384718-00

PATIENT
  Sex: Male

DRUGS (2)
  1. HUMIRA [Suspect]
     Active Substance: ADALIMUMAB
     Indication: Psoriatic arthropathy
     Route: 058
  2. HUMIRA [Suspect]
     Active Substance: ADALIMUMAB
     Indication: Psoriasis

REACTIONS (5)
  - Intervertebral disc protrusion [Unknown]
  - Lumbar vertebral fracture [Recovered/Resolved]
  - Lumbar vertebral fracture [Recovered/Resolved]
  - Back disorder [Unknown]
  - Intervertebral disc protrusion [Unknown]
